FAERS Safety Report 4959156-4 (Version None)
Quarter: 2006Q1

REPORT INFORMATION
  Report Type: 
  Country: None (occurrence: None)
  Receive Date: 20060127
  Receipt Date: 20050301
  Transmission Date: 20060701
  Serious: Yes (Hospitalization, Other)
  Sender: FDA-Public Use
  Company Number: 05-03-0315

PATIENT
  Age: 55 Year
  Sex: Male

DRUGS (12)
  1. CLOZAPINE [Suspect]
     Indication: SCHIZOPHRENIA, PARANOID TYPE
     Dosage: 450MG HS, ORAL
     Route: 048
     Dates: start: 20000901, end: 20050329
  2. BUSPAR [Concomitant]
  3. LIPITOR [Concomitant]
  4. TYLENOL [Concomitant]
  5. ATIVAN [Concomitant]
  6. PEPCID [Concomitant]
  7. METAMUCIL-2 [Concomitant]
  8. SALSALATE (SALSALATE) [Concomitant]
  9. GLUCOPHAGE [Concomitant]
  10. LEXAPRO [Concomitant]
  11. EUCERIN CREME (EUCERIN /01160201/) [Concomitant]
  12. PRILOSEC [Concomitant]

REACTIONS (2)
  - CONVULSION [None]
  - DRUG INEFFECTIVE [None]
